FAERS Safety Report 10249349 (Version 1)
Quarter: 2014Q2

REPORT INFORMATION
  Report Type: Spontaneous
  Country: US (occurrence: US)
  Receive Date: 20140620
  Receipt Date: 20140620
  Transmission Date: 20141212
  Serious: Yes (Hospitalization, Other)
  Sender: FDA-Public Use
  Company Number: US-PFIZER INC-2014166223

PATIENT
  Age: 52 Year
  Sex: Male
  Weight: 117.91 kg

DRUGS (6)
  1. ATORVASTATIN CALCIUM [Suspect]
     Indication: BLOOD CHOLESTEROL INCREASED
     Dosage: 20 MG, 1X/DAY
     Route: 048
     Dates: start: 201311, end: 201312
  2. ATORVASTATIN CALCIUM [Suspect]
     Dosage: 10 MG, 1X/DAY
     Route: 048
     Dates: start: 201312
  3. CLOPIDOGREL [Concomitant]
     Dosage: 75 MG, UNK
  4. METOPROLOL [Concomitant]
     Dosage: UNK
  5. AMLODIPINE [Concomitant]
     Dosage: 5 MG, 2X/DAY
  6. ASPIRIN [Concomitant]
     Dosage: 325 MG, 1X/DAY

REACTIONS (5)
  - Swelling [Not Recovered/Not Resolved]
  - Oedema [Unknown]
  - Joint swelling [Not Recovered/Not Resolved]
  - Peripheral swelling [Not Recovered/Not Resolved]
  - Cardiac disorder [Unknown]
